FAERS Safety Report 9819589 (Version 1)
Quarter: 2014Q1

REPORT INFORMATION
  Report Type: Report from Study
  Country: US (occurrence: US)
  Receive Date: 20140115
  Receipt Date: 20140115
  Transmission Date: 20141002
  Serious: No
  Sender: FDA-Public Use
  Company Number: US-GILEAD-2014-0092104

PATIENT
  Age: 61 Year
  Sex: Female

DRUGS (3)
  1. SOFOSBUVIR [Suspect]
     Indication: CHRONIC HEPATITIS C
     Dosage: 400 MG, UNK
     Route: 065
     Dates: start: 20131223
  2. RIBAVIRIN [Concomitant]
     Dosage: UNK
  3. PEGINTERFERON [Concomitant]
     Indication: CHRONIC HEPATITIS C
     Dosage: UNK

REACTIONS (3)
  - Eructation [Unknown]
  - Abdominal discomfort [Unknown]
  - Fatigue [Unknown]
